FAERS Safety Report 19776906 (Version 2)
Quarter: 2021Q4

REPORT INFORMATION
  Report Type: Spontaneous
  Country: JP (occurrence: JP)
  Receive Date: 20210902
  Receipt Date: 20211008
  Transmission Date: 20220303
  Serious: Yes (Other)
  Sender: FDA-Public Use
  Company Number: JP-BRISTOL-MYERS SQUIBB COMPANY-BMS-2021-061600

PATIENT
  Age: 59 Year
  Sex: Male

DRUGS (3)
  1. OPDIVO [Suspect]
     Active Substance: NIVOLUMAB
     Indication: Head and neck cancer
     Dosage: UNK
     Route: 041
     Dates: start: 20190703, end: 20200219
  2. GUAIAZULENE [Concomitant]
     Active Substance: GUAIAZULENE
     Indication: Erythema
     Dosage: UNK
     Route: 065
     Dates: start: 20170208
  3. ALLOPURINOL [Concomitant]
     Active Substance: ALLOPURINOL
     Indication: Gout
     Route: 048

REACTIONS (4)
  - Renal impairment [Recovering/Resolving]
  - Dehydration [Unknown]
  - Malignant neoplasm progression [Unknown]
  - Pyrexia [Recovered/Resolved]

NARRATIVE: CASE EVENT DATE: 20190718
